FAERS Safety Report 5390093-X (Version None)
Quarter: 2007Q3

REPORT INFORMATION
  Report Type: 
  Country: None (occurrence: None)
  Receive Date: 20070718
  Receipt Date: 20070716
  Transmission Date: 20080115
  Serious: Yes (Hospitalization)
  Sender: FDA-Public Use
  Company Number: B0337631A

PATIENT
  Age: 16 Month
  Sex: Female

DRUGS (4)
  1. AUGMENTIN '125' [Suspect]
     Indication: DRUG USE FOR UNKNOWN INDICATION
     Route: 065
     Dates: start: 19960101
  2. PENICILLIN G POTASSIUM [Suspect]
     Indication: DRUG USE FOR UNKNOWN INDICATION
     Route: 065
  3. LAMICTAL [Suspect]
     Dosage: 75MG TWICE PER DAY
     Route: 048
  4. PHENYTOIN [Suspect]
     Dosage: 9MG PER DAY
     Route: 065

REACTIONS (15)
  - ABNORMAL FAECES [None]
  - AUTISM [None]
  - CANDIDIASIS [None]
  - CONVULSION [None]
  - DIARRHOEA [None]
  - DRUG INEFFECTIVE [None]
  - EPISTAXIS [None]
  - IMPAIRED SELF-CARE [None]
  - LACTOSE INTOLERANCE [None]
  - PHARYNGEAL OEDEMA [None]
  - RASH [None]
  - RESIDUAL URINE [None]
  - UPPER LIMB FRACTURE [None]
  - UPPER RESPIRATORY TRACT INFECTION [None]
  - VOMITING PROJECTILE [None]
